FAERS Safety Report 26067785 (Version 3)
Quarter: 2025Q4

REPORT INFORMATION
  Report Type: Spontaneous
  Country: US (occurrence: US)
  Receive Date: 20251120
  Receipt Date: 20251210
  Transmission Date: 20260118
  Serious: No
  Sender: LEO PHARM
  Company Number: US-LEO Pharma-384233

PATIENT
  Age: 37 Year
  Sex: Female

DRUGS (1)
  1. ADBRY [Suspect]
     Active Substance: TRALOKINUMAB-LDRM
     Indication: Eczema
     Dosage: TREATMENT ONGOING??2-300MG PENS UNDER THE SKIN ON DAY 1 (10/25) THEN 1-300MG PEN EVERY 14 DAYS (UNKN
     Route: 058
     Dates: start: 202510

REACTIONS (3)
  - Skin laceration [Unknown]
  - Drug ineffective [Unknown]
  - Pain in extremity [Unknown]
